FAERS Safety Report 9313106 (Version 1)
Quarter: 2013Q2

REPORT INFORMATION
  Report Type: Spontaneous
  Country: US (occurrence: US)
  Receive Date: 20130528
  Receipt Date: 20130528
  Transmission Date: 20140414
  Serious: No
  Sender: FDA-Public Use
  Company Number: US-ABBOTT-13P-163-1058978-00

PATIENT
  Age: 65 Year
  Sex: Male
  Weight: 83.99 kg

DRUGS (5)
  1. ANDROGEL 1.62% [Suspect]
     Indication: BLOOD TESTOSTERONE DECREASED
     Dosage: 3 PUMPS
     Route: 061
     Dates: start: 201209, end: 201302
  2. ANDROGEL 1.62% [Suspect]
     Dosage: 4 PUMPS
     Route: 061
     Dates: start: 201302
  3. ANDROGEL 1% [Suspect]
     Indication: BLOOD TESTOSTERONE DECREASED
     Dosage: 2 PUMPS
     Route: 061
     Dates: start: 201204, end: 201209
  4. MIRTAZAPINE [Concomitant]
     Indication: DEPRESSION
  5. SUBOXONE [Concomitant]
     Indication: WITHDRAWAL SYNDROME

REACTIONS (6)
  - Drug ineffective [Not Recovered/Not Resolved]
  - Drug ineffective [Not Recovered/Not Resolved]
  - Fatigue [Not Recovered/Not Resolved]
  - Depressed mood [Not Recovered/Not Resolved]
  - Blood testosterone decreased [Not Recovered/Not Resolved]
  - Blood testosterone decreased [Unknown]
